FAERS Safety Report 22870481 (Version 2)
Quarter: 2023Q4

REPORT INFORMATION
  Report Type: Report from Study
  Country: US (occurrence: US)
  Receive Date: 20230827
  Receipt Date: 20231107
  Transmission Date: 20240109
  Serious: Yes (Hospitalization)
  Sender: FDA-Public Use
  Company Number: US-ABBVIE-5364427

PATIENT
  Sex: Male

DRUGS (2)
  1. SKYRIZI [Suspect]
     Active Substance: RISANKIZUMAB-RZAA
     Indication: Crohn^s disease
     Dosage: FORM STRENGTH: 360MG/2.4ML   LAST ADMIN DATE 2023
     Route: 058
     Dates: start: 20230623
  2. SKYRIZI [Suspect]
     Active Substance: RISANKIZUMAB-RZAA
     Dosage: FORM STRENGTH: 360MG/2.4ML         LAST ADMIN DATE 2023
     Route: 058
     Dates: start: 2023

REACTIONS (7)
  - Pneumonia [Recovering/Resolving]
  - Chest discomfort [Unknown]
  - White blood cell count decreased [Unknown]
  - Respiratory disorder [Recovering/Resolving]
  - Pain [Unknown]
  - Flatulence [Unknown]
  - Discomfort [Unknown]

NARRATIVE: CASE EVENT DATE: 20230101
